FAERS Safety Report 6992917-9 (Version None)
Quarter: 2010Q3

REPORT INFORMATION
  Report Type: 
  Country: None (occurrence: None)
  Receive Date: 20100917
  Receipt Date: 20100907
  Transmission Date: 20110219
  Serious: Yes (Other)
  Sender: FDA-Public Use
  Company Number: FR-PFIZER INC-2010093762

PATIENT
  Age: 30 Year
  Sex: Male

DRUGS (3)
  1. LYRICA [Suspect]
     Indication: SCIATICA
     Dosage: 250 MG, 2X/DAY
     Route: 048
  2. LYRICA [Suspect]
  3. LAMICTAL [Concomitant]
     Indication: MYOCLONIC EPILEPSY
     Dosage: UNK

REACTIONS (1)
  - MYOCLONIC EPILEPSY [None]
